FAERS Safety Report 8596930-X (Version None)
Quarter: 2012Q3

REPORT INFORMATION
  Report Type: 
  Country: None (occurrence: None)
  Receive Date: 20120815
  Receipt Date: 20120803
  Transmission Date: 20120928
  Serious: Yes (Hospitalization)
  Sender: FDA-Public Use
  Company Number: FR-AMGEN-UK305829

PATIENT
  Age: 58 Year
  Sex: Male

DRUGS (12)
  1. CINACALCET HYDROCHLORIDE [Suspect]
     Indication: HYPERPARATHYROIDISM SECONDARY
     Dosage: UNK UNK, QD
     Route: 048
     Dates: start: 20080125, end: 20080827
  2. SODIUM POLYSTYRENE SULFONATE [Concomitant]
     Dosage: 15 G, QD
     Route: 048
     Dates: start: 20061222
  3. RAMIPRIL [Concomitant]
     Dosage: 5 MG, QD
     Route: 048
     Dates: start: 20061219
  4. ASPIRIN [Concomitant]
     Dosage: 100 MG, UNK
     Route: 048
     Dates: start: 20060927
  5. ASPIRIN [Suspect]
     Dosage: 100 MG, QD
     Route: 048
     Dates: start: 20060921
  6. NICOTINAMIDE [Concomitant]
     Dosage: 1000 MG, QD
     Route: 048
     Dates: start: 20061206
  7. REPAGLINIDE [Concomitant]
     Dosage: 1 MG, UNK
     Dates: start: 20060615
  8. OMEPRAZOLE [Concomitant]
     Dosage: 8 MG, QH
     Route: 042
     Dates: start: 20080901
  9. CALCIUM [Concomitant]
     Dosage: 600 MG, QD
     Route: 048
     Dates: start: 20061122
  10. PANTOPRAZOLE SODIUM [Concomitant]
     Dosage: 40 MG, QD
     Route: 048
     Dates: start: 20071126
  11. SIMVASTATIN [Concomitant]
     Dosage: 20 MG, QD
     Route: 048
     Dates: start: 20071116
  12. FUROSEMIDE [Concomitant]
     Dosage: 500 MG, QD
     Route: 048
     Dates: start: 20060818

REACTIONS (1)
  - GASTROINTESTINAL HAEMORRHAGE [None]
